FAERS Safety Report 5466765-5 (Version None)
Quarter: 2007Q3

REPORT INFORMATION
  Report Type: 
  Country: None (occurrence: None)
  Receive Date: 20070920
  Receipt Date: 20070914
  Transmission Date: 20080115
  Serious: Yes (Other)
  Sender: FDA-Public Use
  Company Number: SPV1-2007-04142

PATIENT
  Age: 72 Year
  Sex: Male

DRUGS (7)
  1. FOSRENOL [Suspect]
     Dates: start: 20070824, end: 20070828
  2. DURAGESIC-100 [Concomitant]
  3. OMACOR (DOCOSAHEXANOIC ACID, EICOSAPENTAENOIC ACID) [Concomitant]
  4. RAMIPRIL [Concomitant]
  5. MCP (METOCLOPRAMIDE) [Concomitant]
  6. NOVALGIN (METAMIZOLE SODIUM) [Concomitant]
  7. TRIMIPRAMIN (TRIMIPRAMINE MALEATE) [Concomitant]

REACTIONS (1)
  - GASTROINTESTINAL HAEMORRHAGE [None]
